FAERS Safety Report 7413078-8 (Version None)
Quarter: 2011Q2

REPORT INFORMATION
  Report Type: 
  Country: None (occurrence: None)
  Receive Date: 20110408
  Receipt Date: 20110408
  Transmission Date: 20111010
  Serious: No
  Sender: FDA-Public Use
  Company Number: None

PATIENT
  Sex: Male

DRUGS (1)
  1. BETASERON [Suspect]
     Indication: MULTIPLE SCLEROSIS
     Dosage: 0.3MG EVERY OTHER DAY SUBCUTANEOUSLY
     Route: 058
     Dates: start: 20091217

REACTIONS (2)
  - RASH MORBILLIFORM [None]
  - ASTHENIA [None]
